FAERS Safety Report 9884578 (Version 1)
Quarter: 2014Q1

REPORT INFORMATION
  Report Type: Spontaneous
  Country: US (occurrence: US)
  Receive Date: 20140210
  Receipt Date: 20140210
  Transmission Date: 20141002
  Serious: No
  Sender: FDA-Public Use
  Company Number: US-ALLERGAN-1320294US

PATIENT
  Sex: Female

DRUGS (1)
  1. BOTOX COSMETIC [Suspect]
     Indication: SKIN WRINKLING
     Dosage: UNK
     Dates: start: 20131220, end: 20131220

REACTIONS (12)
  - Injury associated with device [Unknown]
  - Neck pain [Unknown]
  - Throat irritation [Unknown]
  - Chills [Unknown]
  - Faeces discoloured [Unknown]
  - Abnormal faeces [Unknown]
  - Ear discomfort [Unknown]
  - Sinusitis [Unknown]
  - Off label use [Unknown]
  - Accidental exposure to product [Unknown]
  - Dysphonia [Unknown]
  - Headache [Unknown]
